FAERS Safety Report 7071188-1 (Version None)
Quarter: 2010Q4

REPORT INFORMATION
  Report Type: 
  Country: None (occurrence: None)
  Receive Date: 20101027
  Receipt Date: 20101027
  Transmission Date: 20110411
  Serious: Yes (Hospitalization)
  Sender: FDA-Public Use
  Company Number: None

PATIENT
  Sex: Male
  Weight: 101 kg

DRUGS (3)
  1. METHOTREXATE [Suspect]
     Dosage: 1650 MG
  2. PEG-L- ASPARAGINASE (K- H) [Suspect]
     Dosage: 11000 MG
  3. VINCRISTINE SULFATE [Suspect]
     Dosage: 10 MG

REACTIONS (7)
  - DRUG TOXICITY [None]
  - MOUTH ULCERATION [None]
  - MUCOSAL INFLAMMATION [None]
  - OROPHARYNGEAL PAIN [None]
  - PAIN [None]
  - PERINEAL ULCERATION [None]
  - SKIN ULCER [None]
